FAERS Safety Report 7265908-0 (Version None)
Quarter: 2011Q1

REPORT INFORMATION
  Report Type: 
  Country: None (occurrence: None)
  Receive Date: 20110131
  Receipt Date: 20110124
  Transmission Date: 20110831
  Serious: Yes (Other)
  Sender: FDA-Public Use
  Company Number: B0696224A

PATIENT
  Sex: Female

DRUGS (4)
  1. EXCEGRAN [Concomitant]
     Route: 048
  2. DEPAKENE [Concomitant]
     Route: 048
  3. LAMICTAL [Suspect]
     Dosage: 200MG PER DAY
     Route: 048
  4. MYSTAN [Concomitant]
     Route: 048

REACTIONS (2)
  - GAZE PALSY [None]
  - DYSTONIA [None]
